FAERS Safety Report 9269170 (Version 2)
Quarter: 2013Q2

REPORT INFORMATION
  Report Type: Spontaneous
  Country: US (occurrence: US)
  Receive Date: 20130503
  Receipt Date: 20130607
  Transmission Date: 20140414
  Serious: No
  Sender: FDA-Public Use
  Company Number: US-ROXANE LABORATORIES, INC.-2013-RO-00654RO

PATIENT
  Age: 59 Year
  Sex: Female

DRUGS (1)
  1. TRIAZOLAM [Suspect]
     Indication: INSOMNIA
     Route: 048
     Dates: start: 20130424, end: 20130425

REACTIONS (2)
  - Drug ineffective [Recovered/Resolved]
  - Product quality issue [Unknown]
